FAERS Safety Report 6186409-7 (Version None)
Quarter: 2009Q2

REPORT INFORMATION
  Report Type: 
  Country: None (occurrence: None)
  Receive Date: 20090511
  Receipt Date: 20090430
  Transmission Date: 20091009
  Serious: Yes (Life-Threatening)
  Sender: FDA-Public Use
  Company Number: GB-AMGEN-US345337

PATIENT
  Age: 62 Year
  Sex: Female
  Weight: 72 kg

DRUGS (6)
  1. ENBREL [Suspect]
     Indication: RHEUMATOID ARTHRITIS
     Dates: start: 20071126, end: 20090212
  2. TIBOLONE [Concomitant]
     Indication: HORMONE REPLACEMENT THERAPY
     Route: 048
     Dates: start: 20030718
  3. SIMVASTATIN [Concomitant]
     Indication: BLOOD CHOLESTEROL INCREASED
     Route: 065
     Dates: start: 20041026
  4. SULFASALAZINE [Concomitant]
     Indication: RHEUMATOID ARTHRITIS
     Route: 048
     Dates: start: 20031121
  5. ATENOLOL [Concomitant]
     Indication: BLOOD PRESSURE INCREASED
     Route: 048
     Dates: start: 20040726
  6. CALCICHEW-D3 [Concomitant]
     Indication: BONE DENSITY DECREASED
     Route: 048
     Dates: start: 20031121

REACTIONS (3)
  - LOCAL SWELLING [None]
  - SWELLING FACE [None]
  - SWOLLEN TONGUE [None]
